FAERS Safety Report 8987421 (Version 1)
Quarter: 2012Q4

REPORT INFORMATION
  Report Type: 
  Country: JP (occurrence: JP)
  Receive Date: 20121227
  Receipt Date: 20121227
  Transmission Date: 20130627
  Serious: Yes (Other)
  Sender: FDA-Public Use
  Company Number: JP-ALLERGAN-1217966US

PATIENT
  Sex: Female

DRUGS (1)
  1. BOTOX [Suspect]
     Indication: FACIAL SPASM
     Dosage: UNK UNK, single
     Route: 030
     Dates: start: 20121214, end: 20121214

REACTIONS (5)
  - Lagophthalmos [Not Recovered/Not Resolved]
  - Convulsion [Unknown]
  - Dysphonia [Not Recovered/Not Resolved]
  - Injury corneal [Unknown]
  - Therapeutic response decreased [Unknown]
